FAERS Safety Report 4340952-1 (Version None)
Quarter: 2004Q2

REPORT INFORMATION
  Report Type: 
  Country: None (occurrence: None)
  Receive Date: 20040413
  Receipt Date: 20040331
  Transmission Date: 20050107
  Serious: Yes (Life-Threatening, Hospitalization)
  Sender: FDA-Public Use
  Company Number: 2004022428

PATIENT
  Age: 49 Year
  Sex: Female

DRUGS (12)
  1. LIPITOR [Suspect]
     Indication: HYPERLIPIDAEMIA
     Dosage: 10 MG (DAILY), ORAL
     Route: 048
     Dates: start: 20030101, end: 20040101
  2. IMIPRAMINE [Suspect]
     Indication: INSOMNIA
     Dosage: 25 MG (DAILY), ORAL
     Route: 048
  3. SULPIRIDE (SULPIRIDE) [Suspect]
     Indication: INSOMNIA
     Dosage: 50 MG (DAILY), ORAL
     Route: 048
  4. CLOXAZOLAM (CLOXAZOLAM) [Suspect]
     Indication: INSOMNIA
     Dosage: 2 MG (DAILY), ORAL
     Route: 048
  5. LOXOPROFEN (LOXOPROFEN) [Concomitant]
  6. TRAZODONE HCL [Concomitant]
  7. AMLODIPINE [Concomitant]
  8. CARTEOLOL (CARTEOLOL) [Concomitant]
  9. FEXOFENADINE HCL [Concomitant]
  10. MEQUITAZINE (MEQUITAZINE) [Concomitant]
  11. OXATOMIDE [Concomitant]
  12. AFLOQUALONE (AFLOQUALONE) [Concomitant]

REACTIONS (3)
  - DEPRESSED LEVEL OF CONSCIOUSNESS [None]
  - RENAL IMPAIRMENT [None]
  - RHABDOMYOLYSIS [None]
